FAERS Safety Report 7512920-X (Version None)
Quarter: 2011Q2

REPORT INFORMATION
  Report Type: 
  Country: None (occurrence: None)
  Receive Date: 20110531
  Receipt Date: 20101119
  Transmission Date: 20111010
  Serious: No
  Sender: FDA-Public Use
  Company Number: US-NOVEN-ALL1-2010-06113

PATIENT
  Sex: Male
  Weight: 19.501 kg

DRUGS (6)
  1. DAYTRANA [Suspect]
     Dosage: 10 MG, 1X/DAY:QD
     Route: 062
     Dates: start: 20101101
  2. DAYTRANA [Suspect]
     Dosage: 10 MG, 1X/DAY:QD
     Route: 062
     Dates: start: 20100901
  3. PULMICORT [Concomitant]
     Dosage: 200 ?G, AS REQ'D
     Route: 055
     Dates: start: 20060101
  4. ANTI-ASTHMATICS [Concomitant]
     Indication: ASTHMA
     Dosage: UNK
     Route: 055
  5. ZOLOFT [Concomitant]
     Dosage: 10 MG, UNK
     Route: 048
     Dates: start: 20110106
  6. RISPERDAL [Concomitant]
     Dosage: 0.75 MG, QD
     Route: 048
     Dates: start: 20101101

REACTIONS (6)
  - WRONG TECHNIQUE IN DRUG USAGE PROCESS [None]
  - APPLICATION SITE ULCER [None]
  - PRODUCT QUALITY ISSUE [None]
  - APPLICATION SITE BURN [None]
  - TIC [None]
  - APPLICATION SITE ERYTHEMA [None]
